FAERS Safety Report 15649851 (Version 2)
Quarter: 2019Q1

REPORT INFORMATION
  Report Type: Spontaneous
  Country: JP (occurrence: JP)
  Receive Date: 20181123
  Receipt Date: 20190122
  Transmission Date: 20190417
  Serious: Yes (Hospitalization)
  Sender: FDA-Public Use
  Company Number: PHJP2018JP019874

PATIENT
  Age: 77 Year
  Sex: Male

DRUGS (1)
  1. EXELON PATCH [Suspect]
     Active Substance: RIVASTIGMINE
     Indication: PRODUCT USED FOR UNKNOWN INDICATION
     Dosage: 1.9 MG, QD (PATCH 2.5 CM2, 4.5 MG RIVASTIGMINE BASE) (1/2 TO 1/4 SHEET)
     Route: 062

REACTIONS (2)
  - Incorrect dose administered [Unknown]
  - Facial bones fracture [Unknown]
